FAERS Safety Report 10262342 (Version 2)
Quarter: 2014Q4

REPORT INFORMATION
  Report Type: Spontaneous
  Country: BR (occurrence: BR)
  Receive Date: 20140626
  Receipt Date: 20141003
  Transmission Date: 20150528
  Serious: Yes (Other)
  Sender: FDA-Public Use
  Company Number: BR-ABBVIE-14P-020-1252245-00

PATIENT
  Age: 18 Year
  Sex: Female
  Weight: 30 kg

DRUGS (8)
  1. DEPAKOTE [Suspect]
     Active Substance: DIVALPROEX SODIUM
     Indication: CEREBRAL PALSY
     Dosage: DURING BREAKFAST AND DINNER;DAILY DOSE: 500 MG
     Route: 048
     Dates: start: 2004
  2. CONTRACEPTIVES [Concomitant]
     Active Substance: UNSPECIFIED INGREDIENT
     Indication: MENSTRUAL CYCLE MANAGEMENT
     Dosage: EVERY MORNING
     Route: 048
     Dates: start: 2009
  3. BACLOFEN. [Concomitant]
     Active Substance: BACLOFEN
     Indication: MUSCLE RELAXANT THERAPY
     Dosage: ONCE A DAY, IN THE MORNING
     Route: 048
  4. ALL OTHER THERAPEUTIC PRODUCTS [Concomitant]
     Active Substance: UNSPECIFIED INGREDIENT
     Indication: MENSTRUAL CYCLE MANAGEMENT
     Dosage: IN THE MORNING
     Route: 048
     Dates: start: 2009
  5. DEPAKOTE [Suspect]
     Active Substance: DIVALPROEX SODIUM
     Dates: start: 2014
  6. LUPRON DEPOT [Suspect]
     Active Substance: LEUPROLIDE ACETATE
     Indication: PRECOCIOUS PUBERTY
  7. FRISIUM [Concomitant]
     Active Substance: CLOBAZAM
     Indication: ANXIOLYTIC THERAPY
     Dosage: ONE DOSE AT NIGHT
     Route: 048
     Dates: start: 2004
  8. TRILEPTAL [Concomitant]
     Active Substance: OXCARBAZEPINE
     Indication: CONVULSION PROPHYLAXIS
     Dosage: IN THE MORNING AND AT NIGHT
     Route: 048
     Dates: start: 2004

REACTIONS (2)
  - Product physical issue [Unknown]
  - Seizure [Recovering/Resolving]

NARRATIVE: CASE EVENT DATE: 201406
